FAERS Safety Report 22014786 (Version 6)
Quarter: 2024Q2

REPORT INFORMATION
  Report Type: Report from Study
  Country: IL (occurrence: IL)
  Receive Date: 20230221
  Receipt Date: 20240415
  Transmission Date: 20240716
  Serious: Yes (Hospitalization, Other)
  Sender: FDA-Public Use
  Company Number: IL-002147023-NVSC2023IL036122

PATIENT
  Age: 7 Month
  Sex: Female
  Weight: 6.9 kg

DRUGS (16)
  1. MEKINIST [Suspect]
     Active Substance: TRAMETINIB DIMETHYL SULFOXIDE
     Indication: Glioma
     Dosage: 0.025 MG/KG/DAY (0.17 MG/DAY, 3.4 ML SYRUP AT CONCENTRATION OF 0.05 MG/ML
     Route: 048
     Dates: start: 20230111, end: 20230205
  2. MEKINIST [Suspect]
     Active Substance: TRAMETINIB DIMETHYL SULFOXIDE
     Indication: Diencephalic syndrome
     Dosage: UNK
     Route: 048
     Dates: start: 20230831, end: 20230901
  3. MEKINIST [Suspect]
     Active Substance: TRAMETINIB DIMETHYL SULFOXIDE
     Dosage: 0.04 MG/KG
     Route: 048
     Dates: start: 20240120
  4. MEKINIST [Suspect]
     Active Substance: TRAMETINIB DIMETHYL SULFOXIDE
     Dosage: 0.025 MG/KG
     Route: 048
  5. MEKINIST [Suspect]
     Active Substance: TRAMETINIB DIMETHYL SULFOXIDE
     Dosage: 0.012 MG/KG, QD (DURING EPISODE OF COLITIS FROM CLOSTRIDIUM DIFFICILE, DOSE WAS DECREASED)
     Route: 048
  6. MEKINIST [Suspect]
     Active Substance: TRAMETINIB DIMETHYL SULFOXIDE
     Dosage: 0.025 MG/KG, QD (INCREASE GRADUALLY TO REGULAR DOSE OVER A FEW WEEKS)
     Route: 048
  7. VINCRISTINE [Concomitant]
     Active Substance: VINCRISTINE
     Indication: Chemotherapy
     Dosage: 0.9 MG, QW
     Route: 065
     Dates: start: 202211
  8. VINCRISTINE [Concomitant]
     Active Substance: VINCRISTINE
     Indication: Glioma
     Dosage: 0.3 MG, QW
     Route: 065
  9. CARBOPLATIN [Concomitant]
     Active Substance: CARBOPLATIN
     Indication: Chemotherapy
     Dosage: 7.5 MG, QW
     Route: 065
     Dates: start: 202211
  10. CARBOPLATIN [Concomitant]
     Active Substance: CARBOPLATIN
     Indication: Glioma
     Dosage: 14.4 MG, QW
     Route: 065
  11. PALONOSETRON HYDROCHLORIDE [Concomitant]
     Active Substance: PALONOSETRON HYDROCHLORIDE
     Indication: Product used for unknown indication
     Dosage: 0.1 MG, QW
     Route: 042
  12. PALONOSETRON HYDROCHLORIDE [Concomitant]
     Active Substance: PALONOSETRON HYDROCHLORIDE
     Dosage: 0.18 MG, QW
     Route: 065
  13. MEPRON [Concomitant]
     Active Substance: ATOVAQUONE
     Indication: Antifungal prophylaxis
     Dosage: 175 MG, QD
     Route: 048
  14. MEPRON [Concomitant]
     Active Substance: ATOVAQUONE
     Dosage: 200 MG, QD
     Route: 065
  15. SODIUM CHLORIDE [Concomitant]
     Active Substance: SODIUM CHLORIDE
     Indication: Hyponatraemia
     Dosage: 40 MEQ, QD (10MEQ X4 )
     Route: 048
  16. SODIUM CHLORIDE [Concomitant]
     Active Substance: SODIUM CHLORIDE
     Dosage: 8 MEQ, QD (4MEQ X2/D)
     Route: 065

REACTIONS (5)
  - Hypertension [Recovered/Resolved]
  - Colitis [Recovered/Resolved]
  - Diarrhoea haemorrhagic [Recovered/Resolved]
  - Clostridium difficile infection [Recovered/Resolved]
  - Accidental overdose [Unknown]

NARRATIVE: CASE EVENT DATE: 20230205
